FAERS Safety Report 6682637-2 (Version None)
Quarter: 2010Q2

REPORT INFORMATION
  Report Type: 
  Country: None (occurrence: None)
  Receive Date: 20100415
  Receipt Date: 20100402
  Transmission Date: 20101027
  Serious: Yes (Hospitalization)
  Sender: FDA-Public Use
  Company Number: PHHY2010FR20933

PATIENT
  Age: 50 Year
  Sex: Male

DRUGS (12)
  1. LEPONEX [Suspect]
     Dosage: 1 DF IN MORNING AND 1.5 DF IN THE EVENING
  2. LEPONEX [Suspect]
     Dosage: UNK
     Dates: start: 20090907, end: 20090915
  3. LARGACTIL [Concomitant]
     Dosage: UNK
     Dates: start: 20090907
  4. VALPROATE SODIUM [Concomitant]
     Dosage: 2 DF IN THE MORNING , AT MIDDAY AND IN THE EVENING
     Dates: start: 20090902, end: 20090904
  5. HEPT-A-MYL [Concomitant]
     Dosage: 2 DF IN THE MORNING , AT MIDDAY AND IN THE EVENING
  6. ATARAX [Concomitant]
     Dosage: 100 MG 0.5 DF IN THE MORNING AND 1 DF IN THE EVENING
  7. XANAX [Concomitant]
     Dosage: 0.5 DF IN THE MORNING AND 0.5 DF IN THE EVENING
  8. TERCIAN [Concomitant]
     Indication: AGITATION
     Dosage: 25, 1DF IN THE MORNING , AT MIDDAY AND IN THE EVENING
  9. TERCIAN [Concomitant]
     Dosage: 25 MG, TID
  10. ARTANE [Concomitant]
     Dosage: 2 MG ,1 DF IN THE MORNING , AT MIDDAY AND IN THE EVENING
  11. VALIUM [Concomitant]
     Dosage: 1 VIAL IF FIT
  12. FORLAX [Concomitant]
     Dosage: 2 DF IN THE MORNING

REACTIONS (11)
  - ABDOMINAL PAIN [None]
  - ALVEOLITIS [None]
  - ANTI-HBE ANTIBODY POSITIVE [None]
  - ANTI-HBS ANTIBODY POSITIVE [None]
  - HYPERAMYLASAEMIA [None]
  - HYPERLIPASAEMIA [None]
  - LUNG DISORDER [None]
  - PANCREATITIS ACUTE [None]
  - PNEUMOCOCCAL INFECTION [None]
  - RESPIRATORY DISTRESS [None]
  - STAPHYLOCOCCAL INFECTION [None]
